FAERS Safety Report 18084146 (Version 1)
Quarter: 2020Q3

REPORT INFORMATION
  Report Type: Spontaneous
  Country: US (occurrence: US)
  Receive Date: 20200728
  Receipt Date: 20200728
  Transmission Date: 20201103
  Serious: Yes (Death)
  Sender: FDA-Public Use
  Company Number: None

PATIENT
  Age: 46 Year
  Sex: Male

DRUGS (2)
  1. TEMOZOLOMIDE 100MG SUN PHARMACEUTICAL [Suspect]
     Active Substance: TEMOZOLOMIDE
     Indication: BRAIN NEOPLASM MALIGNANT
     Route: 048
     Dates: start: 201912, end: 20200708
  2. TEMOZOLOMIDE  250MG ACCORD HEALTHCARE [Suspect]
     Active Substance: TEMOZOLOMIDE
     Indication: BRAIN NEOPLASM MALIGNANT
     Route: 048
     Dates: start: 201912, end: 20200708

REACTIONS (1)
  - Death [None]

NARRATIVE: CASE EVENT DATE: 20200708
